FAERS Safety Report 9240317 (Version 2)
Quarter: 2013Q3

REPORT INFORMATION
  Report Type: Spontaneous
  Country: DE (occurrence: DE)
  Receive Date: 20130418
  Receipt Date: 20130807
  Transmission Date: 20140515
  Serious: Yes (Life-Threatening, Hospitalization)
  Sender: FDA-Public Use
  Company Number: DE-WATSON-2013-06437

PATIENT
  Sex: Male
  Weight: 2 kg

DRUGS (1)
  1. CITALOPRAM HYDROBROMIDE (UNKNOWN) [Suspect]
     Indication: PRODUCT USED FOR UNKNOWN INDICATION
     Dosage: 20 MG, DAILY
     Route: 064
     Dates: start: 2010

REACTIONS (5)
  - Premature baby [Unknown]
  - Pulmonary hypertension [Unknown]
  - Apnoea neonatal [Unknown]
  - Foetal exposure timing unspecified [Unknown]
  - Foetal exposure during pregnancy [Unknown]
